FAERS Safety Report 5178822-1 (Version None)
Quarter: 2006Q4

REPORT INFORMATION
  Report Type: 
  Country: None (occurrence: None)
  Receive Date: 20061208
  Receipt Date: 20061129
  Transmission Date: 20070319
  Serious: Yes (Hospitalization)
  Sender: FDA-Public Use
  Company Number: B0449480A

PATIENT
  Age: 54 Year
  Sex: Male

DRUGS (3)
  1. RANITIDINE HCL [Suspect]
     Indication: DRUG USE FOR UNKNOWN INDICATION
  2. RAMIPRIL [Suspect]
     Indication: DRUG USE FOR UNKNOWN INDICATION
  3. SIMVASTATIN [Suspect]

REACTIONS (3)
  - BLOOD PRESSURE DECREASED [None]
  - HAEMODYNAMIC INSTABILITY [None]
  - OVERDOSE [None]
